FAERS Safety Report 7482674-4 (Version None)
Quarter: 2011Q2

REPORT INFORMATION
  Report Type: 
  Country: None (occurrence: None)
  Receive Date: 20110516
  Receipt Date: 20110511
  Transmission Date: 20111010
  Serious: Yes (Other)
  Sender: FDA-Public Use
  Company Number: US-PFIZER INC-2004064402

PATIENT
  Sex: Female

DRUGS (1)
  1. NEURONTIN [Suspect]
     Indication: BIPOLAR DISORDER
     Dosage: 600 MG, 2X/DAY
     Dates: end: 20040701

REACTIONS (6)
  - DRUG INEFFECTIVE FOR UNAPPROVED INDICATION [None]
  - AGGRESSION [None]
  - SUICIDAL IDEATION [None]
  - HOMICIDAL IDEATION [None]
  - THINKING ABNORMAL [None]
  - MOOD SWINGS [None]
